FAERS Safety Report 9104350 (Version 2)
Quarter: 2013Q1

REPORT INFORMATION
  Report Type: Spontaneous
  Country: DE (occurrence: DE)
  Receive Date: 20130220
  Receipt Date: 20130327
  Transmission Date: 20140127
  Serious: Yes (Other)
  Sender: FDA-Public Use
  Company Number: GXKR2013DE000877

PATIENT
  Age: 43 Year
  Sex: Male

DRUGS (2)
  1. RISPERIDON [Suspect]
     Indication: MULTIPLE SCLEROSIS
     Dosage: 0.5 MG, QD
     Dates: end: 201301
  2. RISPERIDON [Suspect]
     Dosage: 1 MG, QD
     Route: 048

REACTIONS (5)
  - Ileus [Unknown]
  - Pneumonia [Unknown]
  - Convulsion [Unknown]
  - Infection [Unknown]
  - Constipation [Unknown]
